FAERS Safety Report 8244610-2 (Version None)
Quarter: 2012Q1

REPORT INFORMATION
  Report Type: 
  Country: None (occurrence: None)
  Receive Date: 20120329
  Receipt Date: 20120326
  Transmission Date: 20120608
  Serious: Yes (Other)
  Sender: FDA-Public Use
  Company Number: US-PFIZER INC-2012021589

PATIENT

DRUGS (1)
  1. LYRICA [Suspect]
     Dosage: 150 MG, 2X/DAY (150 MG 1 PO BID)
     Route: 048
     Dates: start: 20110609

REACTIONS (2)
  - AMPUTATION [None]
  - DIABETIC NEUROPATHY [None]
